FAERS Safety Report 6166511-6 (Version None)
Quarter: 2009Q2

REPORT INFORMATION
  Report Type: 
  Country: None (occurrence: None)
  Receive Date: 20090424
  Receipt Date: 20090416
  Transmission Date: 20091009
  Serious: Yes (Other)
  Sender: FDA-Public Use
  Company Number: CA-JNJFOC-20090401733

PATIENT
  Sex: Female
  Weight: 93 kg

DRUGS (4)
  1. REMICADE [Suspect]
     Route: 042
  2. REMICADE [Suspect]
     Dosage: THE PATIENT RECEIVED A TOTAL OF 6 INFUSIONS
     Route: 042
  3. REMICADE [Suspect]
     Dosage: THE PATIENT RECEIVED A TOTAL OF 6 INFUSIONS
     Route: 042
  4. REMICADE [Suspect]
     Indication: CROHN'S DISEASE
     Dosage: THE PATIENT RECEIVED A TOTAL OF 6 INFUSIONS
     Route: 042

REACTIONS (6)
  - CHOKING SENSATION [None]
  - DYSPNOEA [None]
  - FLUSHING [None]
  - HYPOAESTHESIA [None]
  - INFUSION RELATED REACTION [None]
  - NAUSEA [None]
